FAERS Safety Report 8186764-2 (Version None)
Quarter: 2012Q1

REPORT INFORMATION
  Report Type: 
  Country: None (occurrence: None)
  Receive Date: 20120306
  Receipt Date: 20120306
  Transmission Date: 20120608
  Serious: No
  Sender: FDA-Public Use
  Company Number: None

PATIENT
  Sex: Male
  Weight: 88.45 kg

DRUGS (1)
  1. METOPROLOL SUCCINATE EXTENDED RELEASE [Suspect]
     Indication: PALPITATIONS
     Dosage: 1 TABLET

REACTIONS (8)
  - PALPITATIONS [None]
  - DIZZINESS [None]
  - NAUSEA [None]
  - INFREQUENT BOWEL MOVEMENTS [None]
  - ASTHENIA [None]
  - MALAISE [None]
  - ABDOMINAL PAIN UPPER [None]
  - PRODUCT SUBSTITUTION ISSUE [None]
